FAERS Safety Report 10847642 (Version 1)
Quarter: 2015Q1

REPORT INFORMATION
  Report Type: Spontaneous
  Country: US (occurrence: US)
  Receive Date: 20150220
  Receipt Date: 20150220
  Transmission Date: 20150721
  Serious: No
  Sender: FDA-Public Use
  Company Number: US-PFIZER INC-2015063475

PATIENT
  Age: 23 Year
  Sex: Male
  Weight: 59 kg

DRUGS (2)
  1. VIAGRA [Suspect]
     Active Substance: SILDENAFIL CITRATE
     Indication: ERECTILE DYSFUNCTION
     Dosage: 1200 MG, AS NEEDED
     Route: 048
     Dates: start: 201412
  2. LORTAB [Suspect]
     Active Substance: ACETAMINOPHEN\HYDROCODONE BITARTRATE
     Indication: BACK DISORDER
     Dosage: 350 MG, 3X/DAY

REACTIONS (4)
  - Incorrect route of drug administration [Unknown]
  - Prescribed overdose [Unknown]
  - Drug ineffective [Unknown]
  - Intentional product misuse [Unknown]
